FAERS Safety Report 24524695 (Version 2)
Quarter: 2024Q4

REPORT INFORMATION
  Report Type: Report from Study
  Country: CN (occurrence: CN)
  Receive Date: 20241019
  Receipt Date: 20241128
  Transmission Date: 20250114
  Serious: Yes (Disabling)
  Sender: ROCHE
  Company Number: CN-ROCHE-10000109414

PATIENT
  Age: 65 Year
  Sex: Female
  Weight: 60 kg

DRUGS (5)
  1. ENSPRYNG [Suspect]
     Active Substance: SATRALIZUMAB-MWGE
     Indication: Neuromyelitis optica spectrum disorder
     Route: 058
     Dates: start: 20240617
  2. CALCIUM CARBONATE [Concomitant]
     Active Substance: CALCIUM CARBONATE
  3. PREGABALIN [Concomitant]
     Active Substance: PREGABALIN
  4. CELLCEPT [Concomitant]
     Active Substance: MYCOPHENOLATE MOFETIL
  5. CALCITRIOL [Concomitant]
     Active Substance: CALCITRIOL

REACTIONS (4)
  - Asthenia [Recovering/Resolving]
  - Rash [Not Recovered/Not Resolved]
  - Hypoaesthesia [Recovering/Resolving]
  - Incontinence [Recovered/Resolved]

NARRATIVE: CASE EVENT DATE: 20240617
